FAERS Safety Report 22287998 (Version 2)
Quarter: 2023Q2

REPORT INFORMATION
  Report Type: Spontaneous
  Country: DE (occurrence: DE)
  Receive Date: 20230505
  Receipt Date: 20230512
  Transmission Date: 20230721
  Serious: Yes (Other)
  Sender: FDA-Public Use
  Company Number: DE-MLMSERVICE-20230424-4247568-1

PATIENT
  Age: 26 Year
  Sex: Male
  Weight: 88 kg

DRUGS (1)
  1. DICLOFENAC SODIUM [Suspect]
     Active Substance: DICLOFENAC SODIUM
     Indication: Analgesic therapy
     Dosage: UNK
     Route: 061
     Dates: start: 202110, end: 202111

REACTIONS (2)
  - Tubulointerstitial nephritis [Recovering/Resolving]
  - Self-medication [Recovered/Resolved]

NARRATIVE: CASE EVENT DATE: 20211001
